FAERS Safety Report 8256157-8 (Version None)
Quarter: 2012Q1

REPORT INFORMATION
  Report Type: 
  Country: None (occurrence: None)
  Receive Date: 20120330
  Receipt Date: 20120319
  Transmission Date: 20120608
  Serious: Yes (Hospitalization)
  Sender: FDA-Public Use
  Company Number: FK201200896

PATIENT
  Age: 71 Year
  Sex: Male
  Weight: 79.7 kg

DRUGS (9)
  1. GEMCITABINE [Suspect]
     Indication: NON-HODGKIN'S LYMPHOMA
     Dosage: 1880 MG, INTRAVENOUS
     Route: 042
     Dates: start: 20090325, end: 20090401
  2. TRIMETHOPRIM + SULFAMETHOXAZOLE [Concomitant]
  3. CYCLOPHOSPHAMIDE [Suspect]
     Indication: NON-HODGKIN'S LYMPHOMA
     Dosage: 1410 MG, INTRAVENOUS
     Route: 042
     Dates: start: 20090325, end: 20090325
  4. NEULASTA [Suspect]
     Indication: NON-HODGKIN'S LYMPHOMA
     Dosage: 6 MG, SUBCUTANEOUS
     Route: 058
     Dates: start: 20090325, end: 20090329
  5. VINCRISTINE [Suspect]
     Indication: NON-HODGKIN'S LYMPHOMA
     Dosage: 2 MG, INTRAVENOUS
     Route: 042
     Dates: start: 20090325, end: 20090325
  6. TRAMADOL HCL [Concomitant]
  7. RITUXIMAB (RITUXIMAB) [Suspect]
     Indication: NON-HODGKIN'S LYMPHOMA
     Dosage: 705 MG, INTRAVENOUS
     Route: 042
     Dates: start: 20090325, end: 20090325
  8. PREDNISONE TAB [Suspect]
     Indication: NON-HODGKIN'S LYMPHOMA
     Dosage: 100 MG, ORAL
     Route: 048
     Dates: start: 20090325, end: 20090329
  9. METOCLOPRAMIDE [Concomitant]

REACTIONS (18)
  - TROPONIN INCREASED [None]
  - WHITE BLOOD CELL COUNT DECREASED [None]
  - CHEST PAIN [None]
  - PYREXIA [None]
  - INFECTION [None]
  - ANAEMIA [None]
  - MYOCARDIAL INFARCTION [None]
  - THROMBOCYTOPENIA [None]
  - SEPSIS [None]
  - ELECTROCARDIOGRAM ST SEGMENT DEPRESSION [None]
  - VENTRICULAR HYPOKINESIA [None]
  - CORONARY ARTERY OCCLUSION [None]
  - BLOOD UREA INCREASED [None]
  - FATIGUE [None]
  - DYSPNOEA EXERTIONAL [None]
  - BLOOD CREATININE INCREASED [None]
  - CORONARY ARTERY DISEASE [None]
  - PLATELET COUNT INCREASED [None]
